FAERS Safety Report 6836711-8 (Version None)
Quarter: 2010Q3

REPORT INFORMATION
  Report Type: 
  Country: None (occurrence: None)
  Receive Date: 20100713
  Receipt Date: 20100629
  Transmission Date: 20110219
  Serious: Yes (Hospitalization, Other)
  Sender: FDA-Public Use
  Company Number: ES-MYLANLABS-2010S1011606

PATIENT
  Age: 62 Year
  Sex: Male

DRUGS (3)
  1. ALLOPURINOL [Suspect]
     Indication: HYPERURICAEMIA
     Route: 065
  2. FUROSEMIDE [Suspect]
     Indication: HYPERCALCAEMIA
     Route: 065
  3. METFORMIN [Concomitant]
     Indication: TYPE 2 DIABETES MELLITUS
     Route: 065

REACTIONS (7)
  - COXIELLA TEST POSITIVE [None]
  - DECREASED APPETITE [None]
  - EPSTEIN-BARR VIRUS TEST POSITIVE [None]
  - GRANULOMATOUS LIVER DISEASE [None]
  - HAEMOGLOBIN DECREASED [None]
  - HYPERCALCAEMIA [None]
  - WEIGHT DECREASED [None]
